FAERS Safety Report 23087483 (Version 5)
Quarter: 2025Q3

REPORT INFORMATION
  Report Type: Spontaneous
  Country: JP (occurrence: JP)
  Receive Date: 20231020
  Receipt Date: 20250828
  Transmission Date: 20251021
  Serious: Yes (Other)
  Sender: UNITED THERAPEUTICS
  Company Number: JP-UNITED THERAPEUTICS-UNT-2022-009539

PATIENT
  Age: 23 Month
  Sex: Female
  Weight: 10.5 kg

DRUGS (43)
  1. UNITUXIN [Suspect]
     Active Substance: DINUTUXIMAB
     Indication: Neuroblastoma
     Route: 041
     Dates: start: 20220412, end: 20220415
  2. UNITUXIN [Suspect]
     Active Substance: DINUTUXIMAB
     Route: 041
     Dates: start: 20220517, end: 20220520
  3. UNITUXIN [Suspect]
     Active Substance: DINUTUXIMAB
     Route: 041
     Dates: start: 20220614, end: 20220617
  4. UNITUXIN [Suspect]
     Active Substance: DINUTUXIMAB
     Route: 041
  5. UNITUXIN [Suspect]
     Active Substance: DINUTUXIMAB
     Route: 041
  6. UNITUXIN [Suspect]
     Active Substance: DINUTUXIMAB
     Route: 041
  7. TECELEUKIN [Suspect]
     Active Substance: TECELEUKIN
     Indication: Neuroblastoma
     Dates: start: 20220510, end: 20220513
  8. TECELEUKIN [Suspect]
     Active Substance: TECELEUKIN
     Dates: start: 20220517, end: 20220520
  9. TECELEUKIN [Suspect]
     Active Substance: TECELEUKIN
  10. SODIUM CHLORIDE [Concomitant]
     Active Substance: SODIUM CHLORIDE
     Indication: Product used for unknown indication
  11. HYDROXYZINE HYDROCHLORIDE [Concomitant]
     Active Substance: HYDROXYZINE HYDROCHLORIDE
     Indication: Prophylaxis
     Dates: start: 20220412, end: 20220416
  12. HYDROXYZINE HYDROCHLORIDE [Concomitant]
     Active Substance: HYDROXYZINE HYDROCHLORIDE
     Dates: start: 20220510, end: 20220513
  13. HYDROXYZINE HYDROCHLORIDE [Concomitant]
     Active Substance: HYDROXYZINE HYDROCHLORIDE
     Dates: start: 20220517, end: 20220521
  14. HYDROXYZINE HYDROCHLORIDE [Concomitant]
     Active Substance: HYDROXYZINE HYDROCHLORIDE
  15. HYDROXYZINE HYDROCHLORIDE [Concomitant]
     Active Substance: HYDROXYZINE HYDROCHLORIDE
     Dates: start: 20220614, end: 20220618
  16. FILGRASTIM [Concomitant]
     Active Substance: FILGRASTIM
     Indication: Neuroblastoma
     Dosage: 5 ?G/KG, QD
     Dates: start: 20220409, end: 20220422
  17. FILGRASTIM [Concomitant]
     Active Substance: FILGRASTIM
     Dosage: 5 ?G/KG, QD
     Dates: start: 20220611, end: 20220624
  18. ACETAMINOPHEN [Concomitant]
     Active Substance: ACETAMINOPHEN
     Indication: Prophylaxis
     Dates: start: 20220412, end: 20220416
  19. ACETAMINOPHEN [Concomitant]
     Active Substance: ACETAMINOPHEN
     Indication: Pain
     Dates: start: 20220510, end: 20220514
  20. ACETAMINOPHEN [Concomitant]
     Active Substance: ACETAMINOPHEN
     Indication: Pyrexia
     Dates: start: 20220517, end: 20220521
  21. ACETAMINOPHEN [Concomitant]
     Active Substance: ACETAMINOPHEN
  22. ACETAMINOPHEN [Concomitant]
     Active Substance: ACETAMINOPHEN
     Dates: start: 20220614, end: 20220618
  23. IBUPROFEN [Concomitant]
     Active Substance: IBUPROFEN
     Indication: Prophylaxis
     Dates: start: 20220414, end: 20220414
  24. IBUPROFEN [Concomitant]
     Active Substance: IBUPROFEN
     Dates: start: 20220518, end: 20220521
  25. LASIX [Concomitant]
     Active Substance: FUROSEMIDE
     Indication: Prophylaxis
     Dates: start: 20220413, end: 20220416
  26. LASIX [Concomitant]
     Active Substance: FUROSEMIDE
     Indication: Weight increased
     Dates: start: 20220517, end: 20220522
  27. LASIX [Concomitant]
     Active Substance: FUROSEMIDE
     Indication: Generalised oedema
     Dates: start: 20220614, end: 20220618
  28. LASIX [Concomitant]
     Active Substance: FUROSEMIDE
     Indication: Cough
  29. MORPHINE HYDROCHLORIDE [Concomitant]
     Active Substance: MORPHINE HYDROCHLORIDE
     Indication: Prophylaxis
     Dates: start: 20220412, end: 20220416
  30. MORPHINE HYDROCHLORIDE [Concomitant]
     Active Substance: MORPHINE HYDROCHLORIDE
     Indication: Pain
     Dates: start: 20220517, end: 20220521
  31. MORPHINE HYDROCHLORIDE [Concomitant]
     Active Substance: MORPHINE HYDROCHLORIDE
  32. MORPHINE HYDROCHLORIDE [Concomitant]
     Active Substance: MORPHINE HYDROCHLORIDE
     Dates: start: 20220614, end: 20220618
  33. EPINEPHRINE [Concomitant]
     Active Substance: EPINEPHRINE
     Indication: Laryngeal oedema
  34. EPINEPHRINE [Concomitant]
     Active Substance: EPINEPHRINE
     Indication: Dyspnoea
     Dates: start: 20220520, end: 20220521
  35. BUDESONIDE [Concomitant]
     Active Substance: BUDESONIDE
     Indication: Wheezing
     Dosage: 0.25 MG, BID
     Dates: start: 20220517, end: 20220523
  36. BUDESONIDE [Concomitant]
     Active Substance: BUDESONIDE
     Indication: Cough
  37. BUDESONIDE [Concomitant]
     Active Substance: BUDESONIDE
     Indication: Dyspnoea
  38. BUDESONIDE [Concomitant]
     Active Substance: BUDESONIDE
     Indication: Weight increased
  39. BUDESONIDE [Concomitant]
     Active Substance: BUDESONIDE
     Indication: Generalised oedema
  40. BUDESONIDE [Concomitant]
     Active Substance: BUDESONIDE
     Indication: Laryngeal oedema
  41. ALBUMIN HUMAN [Concomitant]
     Active Substance: ALBUMIN HUMAN
     Indication: Weight increased
  42. ALBUMIN HUMAN [Concomitant]
     Active Substance: ALBUMIN HUMAN
     Indication: Generalised oedema
  43. ALBUMIN HUMAN [Concomitant]
     Active Substance: ALBUMIN HUMAN
     Indication: Hypoalbuminaemia

REACTIONS (27)
  - Liver disorder [Unknown]
  - Laryngeal oedema [Recovering/Resolving]
  - Hypogammaglobulinaemia [Recovering/Resolving]
  - Pain [Recovered/Resolved]
  - Pyrexia [Recovered/Resolved]
  - Mood altered [Recovered/Resolved]
  - Anaemia [Recovering/Resolving]
  - Pyrexia [Recovered/Resolved]
  - Cough [Recovering/Resolving]
  - Oxygen saturation decreased [Recovered/Resolved]
  - Weight increased [Recovering/Resolving]
  - Dyspnoea [Recovering/Resolving]
  - Generalised oedema [Recovering/Resolving]
  - Pain [Recovered/Resolved]
  - Wheezing [Recovering/Resolving]
  - Hypoalbuminaemia [Recovering/Resolving]
  - Anaemia [Recovering/Resolving]
  - Pyrexia [Recovering/Resolving]
  - Pain [Recovering/Resolving]
  - Generalised oedema [Recovering/Resolving]
  - Cough [Recovering/Resolving]
  - Pyrexia [Unknown]
  - Pain [Unknown]
  - Pyrexia [Unknown]
  - Pain [Unknown]
  - Pyrexia [Unknown]
  - Pain [Unknown]

NARRATIVE: CASE EVENT DATE: 20220412
